FAERS Safety Report 6801638-4 (Version None)
Quarter: 2010Q2

REPORT INFORMATION
  Report Type: 
  Country: None (occurrence: None)
  Receive Date: 20100629
  Receipt Date: 20100628
  Transmission Date: 20101027
  Serious: Yes (Hospitalization)
  Sender: FDA-Public Use
  Company Number: IT-WYE-G06327110

PATIENT
  Sex: Male
  Weight: 68 kg

DRUGS (3)
  1. TORISEL [Suspect]
     Indication: ACUTE MYELOID LEUKAEMIA
     Route: 042
     Dates: start: 20100531, end: 20100531
  2. KANRENOL [Concomitant]
     Indication: HEPATIC CIRRHOSIS
     Dosage: 100 MG
     Route: 048
  3. GLICLAZIDE [Concomitant]
     Indication: DIABETES MELLITUS
     Route: 048
     Dates: start: 20070101

REACTIONS (1)
  - OPTIC ISCHAEMIC NEUROPATHY [None]
